FAERS Safety Report 13411401 (Version 2)
Quarter: 2017Q4

REPORT INFORMATION
  Report Type: Spontaneous
  Country: US (occurrence: US)
  Receive Date: 20170406
  Receipt Date: 20171103
  Transmission Date: 20180320
  Serious: Yes (Other)
  Sender: FDA-Public Use
  Company Number: US-JNJFOC-20170304752

PATIENT
  Age: 16 Year
  Sex: Male

DRUGS (140)
  1. RISPERDAL [Suspect]
     Active Substance: RISPERIDONE
     Indication: IMPULSIVE BEHAVIOUR
     Route: 048
     Dates: start: 20111128
  2. RISPERDAL [Suspect]
     Active Substance: RISPERIDONE
     Indication: BIPOLAR DISORDER
     Route: 048
     Dates: start: 20120130, end: 20120710
  3. RISPERDAL [Suspect]
     Active Substance: RISPERIDONE
     Indication: BIPOLAR DISORDER
     Route: 048
     Dates: start: 20081205, end: 20090613
  4. RISPERDAL [Suspect]
     Active Substance: RISPERIDONE
     Indication: BIPOLAR DISORDER
     Dosage: 0.5 MG AT BED TIME
     Route: 048
     Dates: start: 20070717
  5. RISPERDAL [Suspect]
     Active Substance: RISPERIDONE
     Indication: AFFECTIVE DISORDER
     Route: 048
     Dates: start: 20081205, end: 20090613
  6. RISPERDAL [Suspect]
     Active Substance: RISPERIDONE
     Indication: AFFECTIVE DISORDER
     Route: 048
     Dates: start: 20111128
  7. RISPERDAL [Suspect]
     Active Substance: RISPERIDONE
     Indication: OBSESSIVE-COMPULSIVE DISORDER
     Route: 048
     Dates: start: 20130402, end: 20140619
  8. RISPERDAL [Suspect]
     Active Substance: RISPERIDONE
     Indication: OBSESSIVE-COMPULSIVE DISORDER
     Route: 048
     Dates: start: 20081205, end: 20090613
  9. RISPERDAL [Suspect]
     Active Substance: RISPERIDONE
     Indication: OPPOSITIONAL DEFIANT DISORDER
     Route: 048
     Dates: start: 20070723, end: 20080509
  10. RISPERDAL [Suspect]
     Active Substance: RISPERIDONE
     Indication: OPPOSITIONAL DEFIANT DISORDER
     Route: 048
     Dates: start: 20110908
  11. RISPERDAL [Suspect]
     Active Substance: RISPERIDONE
     Indication: OPPOSITIONAL DEFIANT DISORDER
     Route: 048
     Dates: start: 20100521
  12. RISPERDAL [Suspect]
     Active Substance: RISPERIDONE
     Indication: ATTENTION DEFICIT/HYPERACTIVITY DISORDER
     Dosage: 0.5 MG AT BED TIME
     Route: 048
     Dates: start: 20070717
  13. RISPERDAL [Suspect]
     Active Substance: RISPERIDONE
     Indication: ATTENTION DEFICIT/HYPERACTIVITY DISORDER
     Route: 048
     Dates: start: 20110908
  14. RISPERDAL [Suspect]
     Active Substance: RISPERIDONE
     Indication: ATTENTION DEFICIT/HYPERACTIVITY DISORDER
     Route: 048
     Dates: start: 20120130, end: 20120710
  15. RISPERDAL [Suspect]
     Active Substance: RISPERIDONE
     Indication: ATTENTION DEFICIT/HYPERACTIVITY DISORDER
     Route: 048
     Dates: start: 20101216, end: 20110531
  16. RISPERDAL [Suspect]
     Active Substance: RISPERIDONE
     Indication: ATTENTION DEFICIT/HYPERACTIVITY DISORDER
     Route: 048
     Dates: start: 20070723, end: 20080509
  17. RISPERDAL [Suspect]
     Active Substance: RISPERIDONE
     Indication: INSOMNIA
     Route: 048
     Dates: start: 20110926
  18. RISPERDAL [Suspect]
     Active Substance: RISPERIDONE
     Indication: INSOMNIA
     Route: 048
     Dates: start: 20110908
  19. RISPERDAL [Suspect]
     Active Substance: RISPERIDONE
     Indication: INSOMNIA
     Dosage: 0.5 MG TO 1 MG AT BED TIME.
     Route: 048
     Dates: start: 20140619, end: 20140724
  20. RISPERDAL [Suspect]
     Active Substance: RISPERIDONE
     Indication: DRUG THERAPY
     Route: 048
     Dates: start: 20110602
  21. RISPERDAL [Suspect]
     Active Substance: RISPERIDONE
     Indication: DRUG THERAPY
     Route: 048
     Dates: start: 20101216, end: 20110531
  22. RISPERDAL [Suspect]
     Active Substance: RISPERIDONE
     Indication: DRUG THERAPY
     Route: 048
     Dates: start: 20111128
  23. RISPERDAL [Suspect]
     Active Substance: RISPERIDONE
     Indication: IMPULSIVE BEHAVIOUR
     Route: 048
     Dates: start: 20100818
  24. RISPERDAL [Suspect]
     Active Substance: RISPERIDONE
     Indication: IMPULSIVE BEHAVIOUR
     Route: 048
     Dates: start: 20070723, end: 20080509
  25. RISPERDAL [Suspect]
     Active Substance: RISPERIDONE
     Indication: BIPOLAR DISORDER
     Route: 048
     Dates: start: 20101216, end: 20110531
  26. RISPERDAL [Suspect]
     Active Substance: RISPERIDONE
     Indication: BIPOLAR DISORDER
     Route: 048
     Dates: start: 20110725
  27. RISPERDAL [Suspect]
     Active Substance: RISPERIDONE
     Indication: BIPOLAR DISORDER
     Route: 048
     Dates: start: 20110908
  28. RISPERDAL [Suspect]
     Active Substance: RISPERIDONE
     Indication: BIPOLAR DISORDER
     Route: 048
     Dates: start: 20110602
  29. RISPERDAL [Suspect]
     Active Substance: RISPERIDONE
     Indication: AFFECTIVE DISORDER
     Route: 048
     Dates: start: 20100818
  30. RISPERDAL [Suspect]
     Active Substance: RISPERIDONE
     Indication: AFFECTIVE DISORDER
     Route: 048
     Dates: start: 20080516, end: 20081024
  31. RISPERDAL [Suspect]
     Active Substance: RISPERIDONE
     Indication: AFFECTIVE DISORDER
     Dosage: 0.5 MG TO 1 MG AT BED TIME.
     Route: 048
     Dates: start: 20140619, end: 20140724
  32. RISPERDAL [Suspect]
     Active Substance: RISPERIDONE
     Indication: AFFECTIVE DISORDER
     Route: 048
     Dates: start: 20110602
  33. RISPERDAL [Suspect]
     Active Substance: RISPERIDONE
     Indication: OBSESSIVE-COMPULSIVE DISORDER
     Dosage: 0.5 MG TO 1 MG AT BED TIME.
     Route: 048
     Dates: start: 20140619, end: 20140724
  34. RISPERDAL [Suspect]
     Active Substance: RISPERIDONE
     Indication: OBSESSIVE-COMPULSIVE DISORDER
     Route: 048
     Dates: start: 20080516, end: 20081024
  35. RISPERDAL [Suspect]
     Active Substance: RISPERIDONE
     Indication: OBSESSIVE-COMPULSIVE DISORDER
     Route: 048
     Dates: start: 20101216, end: 20110531
  36. RISPERDAL [Suspect]
     Active Substance: RISPERIDONE
     Indication: OPPOSITIONAL DEFIANT DISORDER
     Route: 048
     Dates: start: 20110926
  37. RISPERDAL [Suspect]
     Active Substance: RISPERIDONE
     Indication: OPPOSITIONAL DEFIANT DISORDER
     Route: 048
     Dates: start: 20110725
  38. RISPERDAL [Suspect]
     Active Substance: RISPERIDONE
     Indication: OPPOSITIONAL DEFIANT DISORDER
     Route: 048
     Dates: start: 20101216, end: 20110531
  39. RISPERDAL [Suspect]
     Active Substance: RISPERIDONE
     Indication: ATTENTION DEFICIT/HYPERACTIVITY DISORDER
     Route: 048
     Dates: start: 20080516, end: 20081024
  40. RISPERIDONE. [Suspect]
     Active Substance: RISPERIDONE
     Indication: AFFECTIVE DISORDER
     Route: 048
     Dates: start: 20090804, end: 20100227
  41. RISPERDAL [Suspect]
     Active Substance: RISPERIDONE
     Indication: INSOMNIA
     Route: 048
     Dates: start: 20100521
  42. RISPERDAL [Suspect]
     Active Substance: RISPERIDONE
     Indication: DRUG THERAPY
     Route: 048
     Dates: start: 20110926
  43. RISPERDAL [Suspect]
     Active Substance: RISPERIDONE
     Indication: IRRITABILITY
     Route: 048
     Dates: start: 20100521
  44. RISPERDAL [Suspect]
     Active Substance: RISPERIDONE
     Indication: IRRITABILITY
     Route: 048
     Dates: start: 20080516, end: 20081024
  45. RISPERDAL [Suspect]
     Active Substance: RISPERIDONE
     Indication: IRRITABILITY
     Route: 048
     Dates: start: 20101216, end: 20110531
  46. RISPERDAL [Suspect]
     Active Substance: RISPERIDONE
     Indication: IMPULSIVE BEHAVIOUR
     Route: 048
     Dates: start: 20110908
  47. RISPERDAL [Suspect]
     Active Substance: RISPERIDONE
     Indication: IMPULSIVE BEHAVIOUR
     Route: 048
     Dates: start: 20110926
  48. RISPERDAL [Suspect]
     Active Substance: RISPERIDONE
     Indication: IMPULSIVE BEHAVIOUR
     Route: 048
     Dates: start: 20080516, end: 20081024
  49. RISPERDAL [Suspect]
     Active Substance: RISPERIDONE
     Indication: BIPOLAR DISORDER
     Route: 048
     Dates: start: 20080516, end: 20081024
  50. RISPERDAL [Suspect]
     Active Substance: RISPERIDONE
     Indication: AFFECTIVE DISORDER
     Route: 048
     Dates: start: 20110926
  51. RISPERDAL [Suspect]
     Active Substance: RISPERIDONE
     Indication: AFFECTIVE DISORDER
     Dosage: 0.5 MG AT BED TIME
     Route: 048
     Dates: start: 20070717
  52. RISPERDAL [Suspect]
     Active Substance: RISPERIDONE
     Indication: OBSESSIVE-COMPULSIVE DISORDER
     Route: 048
     Dates: start: 20100521
  53. RISPERDAL [Suspect]
     Active Substance: RISPERIDONE
     Indication: OBSESSIVE-COMPULSIVE DISORDER
     Route: 048
     Dates: start: 20111128
  54. RISPERDAL [Suspect]
     Active Substance: RISPERIDONE
     Indication: OBSESSIVE-COMPULSIVE DISORDER
     Route: 048
     Dates: start: 20100818
  55. RISPERDAL [Suspect]
     Active Substance: RISPERIDONE
     Indication: OPPOSITIONAL DEFIANT DISORDER
     Route: 048
     Dates: start: 20120130, end: 20120710
  56. RISPERDAL [Suspect]
     Active Substance: RISPERIDONE
     Indication: OPPOSITIONAL DEFIANT DISORDER
     Route: 048
     Dates: start: 20081205, end: 20090613
  57. RISPERDAL [Suspect]
     Active Substance: RISPERIDONE
     Indication: INSOMNIA
     Route: 048
     Dates: start: 20130402, end: 20140619
  58. RISPERDAL [Suspect]
     Active Substance: RISPERIDONE
     Indication: INSOMNIA
     Route: 048
     Dates: start: 20110725
  59. RISPERDAL [Suspect]
     Active Substance: RISPERIDONE
     Indication: DRUG THERAPY
     Route: 048
     Dates: start: 20110908
  60. RISPERDAL [Suspect]
     Active Substance: RISPERIDONE
     Indication: DRUG THERAPY
     Dosage: 0.5 MG TO 1 MG AT BED TIME.
     Route: 048
     Dates: start: 20140619, end: 20140724
  61. RISPERDAL [Suspect]
     Active Substance: RISPERIDONE
     Indication: DRUG THERAPY
     Route: 048
     Dates: start: 20100818
  62. RISPERDAL [Suspect]
     Active Substance: RISPERIDONE
     Indication: IRRITABILITY
     Route: 048
     Dates: start: 20120130, end: 20120710
  63. RISPERDAL [Suspect]
     Active Substance: RISPERIDONE
     Indication: IRRITABILITY
     Route: 048
     Dates: start: 20100818
  64. RISPERDAL [Suspect]
     Active Substance: RISPERIDONE
     Indication: IRRITABILITY
     Route: 048
     Dates: start: 20130402, end: 20140619
  65. RISPERDAL [Suspect]
     Active Substance: RISPERIDONE
     Indication: IMPULSIVE BEHAVIOUR
     Dosage: 0.5 MG TO 1 MG AT BED TIME.
     Route: 048
     Dates: start: 20140619, end: 20140724
  66. RISPERDAL [Suspect]
     Active Substance: RISPERIDONE
     Indication: IMPULSIVE BEHAVIOUR
     Route: 048
     Dates: start: 20081205, end: 20090613
  67. RISPERDAL [Suspect]
     Active Substance: RISPERIDONE
     Indication: OBSESSIVE-COMPULSIVE DISORDER
     Route: 048
     Dates: start: 20120130, end: 20120710
  68. RISPERDAL [Suspect]
     Active Substance: RISPERIDONE
     Indication: OBSESSIVE-COMPULSIVE DISORDER
     Route: 048
     Dates: start: 20110725
  69. RISPERDAL [Suspect]
     Active Substance: RISPERIDONE
     Indication: OPPOSITIONAL DEFIANT DISORDER
     Route: 048
     Dates: start: 20080516, end: 20081024
  70. RISPERDAL [Suspect]
     Active Substance: RISPERIDONE
     Indication: ATTENTION DEFICIT/HYPERACTIVITY DISORDER
     Route: 048
     Dates: start: 20130402, end: 20140619
  71. RISPERDAL [Suspect]
     Active Substance: RISPERIDONE
     Indication: ATTENTION DEFICIT/HYPERACTIVITY DISORDER
     Route: 048
     Dates: start: 20100521
  72. RISPERDAL [Suspect]
     Active Substance: RISPERIDONE
     Indication: ATTENTION DEFICIT/HYPERACTIVITY DISORDER
     Route: 048
     Dates: start: 20081205, end: 20090613
  73. RISPERDAL [Suspect]
     Active Substance: RISPERIDONE
     Indication: ATTENTION DEFICIT/HYPERACTIVITY DISORDER
     Dosage: 0.5 MG TO 1 MG AT BED TIME.
     Route: 048
     Dates: start: 20140619, end: 20140724
  74. RISPERDAL [Suspect]
     Active Substance: RISPERIDONE
     Indication: INSOMNIA
     Route: 048
     Dates: start: 20110602
  75. RISPERDAL [Suspect]
     Active Substance: RISPERIDONE
     Indication: INSOMNIA
     Route: 048
     Dates: start: 20111128
  76. RISPERDAL [Suspect]
     Active Substance: RISPERIDONE
     Indication: INSOMNIA
     Route: 048
     Dates: start: 20070723, end: 20080509
  77. RISPERDAL [Suspect]
     Active Substance: RISPERIDONE
     Indication: DRUG THERAPY
     Route: 048
     Dates: start: 20080516, end: 20081024
  78. RISPERDAL [Suspect]
     Active Substance: RISPERIDONE
     Indication: IRRITABILITY
     Route: 048
     Dates: start: 20110725
  79. RISPERDAL [Suspect]
     Active Substance: RISPERIDONE
     Indication: IRRITABILITY
     Dosage: 0.5 MG AT BED TIME
     Route: 048
     Dates: start: 20070717
  80. RISPERDAL [Suspect]
     Active Substance: RISPERIDONE
     Indication: IRRITABILITY
     Route: 048
     Dates: start: 20110908
  81. RISPERDAL [Suspect]
     Active Substance: RISPERIDONE
     Indication: BIPOLAR DISORDER
     Dosage: 0.5 MG TO 1 MG AT BED TIME.
     Route: 048
     Dates: start: 20140619, end: 20140724
  82. RISPERDAL [Suspect]
     Active Substance: RISPERIDONE
     Indication: ATTENTION DEFICIT/HYPERACTIVITY DISORDER
     Route: 048
     Dates: start: 20110926
  83. RISPERDAL [Suspect]
     Active Substance: RISPERIDONE
     Indication: ATTENTION DEFICIT/HYPERACTIVITY DISORDER
     Route: 048
     Dates: start: 20110725
  84. RISPERDAL [Suspect]
     Active Substance: RISPERIDONE
     Indication: ATTENTION DEFICIT/HYPERACTIVITY DISORDER
     Route: 048
     Dates: start: 20110602
  85. RISPERIDONE. [Suspect]
     Active Substance: RISPERIDONE
     Indication: ATTENTION DEFICIT/HYPERACTIVITY DISORDER
     Route: 048
     Dates: start: 20090804, end: 20100227
  86. RISPERDAL [Suspect]
     Active Substance: RISPERIDONE
     Indication: DRUG THERAPY
     Route: 048
     Dates: start: 20120130, end: 20120710
  87. RISPERDAL [Suspect]
     Active Substance: RISPERIDONE
     Indication: DRUG THERAPY
     Route: 048
     Dates: start: 20130402, end: 20140619
  88. RISPERDAL [Suspect]
     Active Substance: RISPERIDONE
     Indication: IRRITABILITY
     Route: 048
     Dates: start: 20110602
  89. RISPERDAL [Suspect]
     Active Substance: RISPERIDONE
     Indication: IRRITABILITY
     Route: 048
     Dates: start: 20110926
  90. RISPERDAL [Suspect]
     Active Substance: RISPERIDONE
     Indication: IMPULSIVE BEHAVIOUR
     Route: 048
     Dates: start: 20120130, end: 20120710
  91. RISPERDAL [Suspect]
     Active Substance: RISPERIDONE
     Indication: IMPULSIVE BEHAVIOUR
     Dosage: 0.5 MG AT BED TIME
     Route: 048
     Dates: start: 20070717
  92. RISPERDAL [Suspect]
     Active Substance: RISPERIDONE
     Indication: BIPOLAR DISORDER
     Route: 048
     Dates: start: 20100818
  93. RISPERDAL [Suspect]
     Active Substance: RISPERIDONE
     Indication: BIPOLAR DISORDER
     Route: 048
     Dates: start: 20111128
  94. RISPERDAL [Suspect]
     Active Substance: RISPERIDONE
     Indication: AFFECTIVE DISORDER
     Route: 048
     Dates: start: 20070723, end: 20080509
  95. RISPERDAL [Suspect]
     Active Substance: RISPERIDONE
     Indication: AFFECTIVE DISORDER
     Route: 048
     Dates: start: 20101216, end: 20110531
  96. RISPERDAL [Suspect]
     Active Substance: RISPERIDONE
     Indication: OBSESSIVE-COMPULSIVE DISORDER
     Route: 048
     Dates: start: 20110908
  97. RISPERDAL [Suspect]
     Active Substance: RISPERIDONE
     Indication: OPPOSITIONAL DEFIANT DISORDER
     Route: 048
     Dates: start: 20110602
  98. RISPERDAL [Suspect]
     Active Substance: RISPERIDONE
     Indication: ATTENTION DEFICIT/HYPERACTIVITY DISORDER
     Route: 048
     Dates: start: 20111128
  99. TRAZODONE [Suspect]
     Active Substance: TRAZODONE HYDROCHLORIDE
     Indication: INSOMNIA
     Route: 048
  100. RISPERDAL [Suspect]
     Active Substance: RISPERIDONE
     Indication: INSOMNIA
     Route: 048
     Dates: start: 20101216, end: 20110531
  101. RISPERDAL [Suspect]
     Active Substance: RISPERIDONE
     Indication: INSOMNIA
     Route: 048
     Dates: start: 20080516, end: 20081024
  102. RISPERDAL [Suspect]
     Active Substance: RISPERIDONE
     Indication: INSOMNIA
     Route: 048
     Dates: start: 20120130, end: 20120710
  103. RISPERDAL [Suspect]
     Active Substance: RISPERIDONE
     Indication: DRUG THERAPY
     Route: 048
     Dates: start: 20070723, end: 20080509
  104. RISPERDAL [Suspect]
     Active Substance: RISPERIDONE
     Indication: DRUG THERAPY
     Route: 048
     Dates: start: 20110725
  105. RISPERDAL [Suspect]
     Active Substance: RISPERIDONE
     Indication: DRUG THERAPY
     Dosage: 0.5 MG AT BED TIME
     Route: 048
     Dates: start: 20070717
  106. RISPERDAL [Suspect]
     Active Substance: RISPERIDONE
     Indication: IRRITABILITY
     Route: 048
     Dates: start: 20081205, end: 20090613
  107. RISPERDAL [Suspect]
     Active Substance: RISPERIDONE
     Indication: IRRITABILITY
     Route: 048
     Dates: start: 20070723, end: 20080509
  108. RISPERDAL [Suspect]
     Active Substance: RISPERIDONE
     Indication: IMPULSIVE BEHAVIOUR
     Route: 048
     Dates: start: 20101216, end: 20110531
  109. RISPERDAL [Suspect]
     Active Substance: RISPERIDONE
     Indication: BIPOLAR DISORDER
     Route: 048
     Dates: start: 20070723, end: 20080509
  110. RISPERDAL [Suspect]
     Active Substance: RISPERIDONE
     Indication: BIPOLAR DISORDER
     Route: 048
     Dates: start: 20130402, end: 20140619
  111. RISPERDAL [Suspect]
     Active Substance: RISPERIDONE
     Indication: BIPOLAR DISORDER
     Route: 048
     Dates: start: 20110926
  112. RISPERDAL [Suspect]
     Active Substance: RISPERIDONE
     Indication: BIPOLAR DISORDER
     Route: 048
     Dates: start: 20100521
  113. RISPERDAL [Suspect]
     Active Substance: RISPERIDONE
     Indication: AFFECTIVE DISORDER
     Route: 048
     Dates: start: 20110908
  114. RISPERDAL [Suspect]
     Active Substance: RISPERIDONE
     Indication: AFFECTIVE DISORDER
     Route: 048
     Dates: start: 20110725
  115. RISPERDAL [Suspect]
     Active Substance: RISPERIDONE
     Indication: AFFECTIVE DISORDER
     Route: 048
     Dates: start: 20120130, end: 20120710
  116. RISPERDAL [Suspect]
     Active Substance: RISPERIDONE
     Indication: OBSESSIVE-COMPULSIVE DISORDER
     Route: 048
     Dates: start: 20070723, end: 20080509
  117. RISPERDAL [Suspect]
     Active Substance: RISPERIDONE
     Indication: OBSESSIVE-COMPULSIVE DISORDER
     Route: 048
     Dates: start: 20110602
  118. RISPERDAL [Suspect]
     Active Substance: RISPERIDONE
     Indication: OBSESSIVE-COMPULSIVE DISORDER
     Dosage: 0.5 MG AT BED TIME
     Route: 048
     Dates: start: 20070717
  119. RISPERIDONE. [Suspect]
     Active Substance: RISPERIDONE
     Indication: OPPOSITIONAL DEFIANT DISORDER
     Route: 048
     Dates: start: 20090804, end: 20100227
  120. RISPERDAL [Suspect]
     Active Substance: RISPERIDONE
     Indication: INSOMNIA
     Route: 048
     Dates: start: 20100818
  121. RISPERDAL [Suspect]
     Active Substance: RISPERIDONE
     Indication: INSOMNIA
     Dosage: 0.5 MG AT BED TIME
     Route: 048
     Dates: start: 20070717
  122. RISPERDAL [Suspect]
     Active Substance: RISPERIDONE
     Indication: INSOMNIA
     Route: 048
     Dates: start: 20081205, end: 20090613
  123. RISPERDAL [Suspect]
     Active Substance: RISPERIDONE
     Indication: DRUG THERAPY
     Route: 048
     Dates: start: 20100521
  124. RISPERDAL [Suspect]
     Active Substance: RISPERIDONE
     Indication: DRUG THERAPY
     Route: 048
     Dates: start: 20081205, end: 20090613
  125. RISPERDAL [Suspect]
     Active Substance: RISPERIDONE
     Indication: IRRITABILITY
     Route: 048
     Dates: start: 20111128
  126. RISPERDAL [Suspect]
     Active Substance: RISPERIDONE
     Indication: IRRITABILITY
     Dosage: 0.5 MG TO 1 MG AT BED TIME.
     Route: 048
     Dates: start: 20140619, end: 20140724
  127. RISPERDAL [Suspect]
     Active Substance: RISPERIDONE
     Indication: IMPULSIVE BEHAVIOUR
     Route: 048
     Dates: start: 20100521
  128. RISPERDAL [Suspect]
     Active Substance: RISPERIDONE
     Indication: IMPULSIVE BEHAVIOUR
     Route: 048
     Dates: start: 20110602
  129. RISPERDAL [Suspect]
     Active Substance: RISPERIDONE
     Indication: IMPULSIVE BEHAVIOUR
     Route: 048
     Dates: start: 20110725
  130. RISPERDAL [Suspect]
     Active Substance: RISPERIDONE
     Indication: IMPULSIVE BEHAVIOUR
     Route: 048
     Dates: start: 20130402, end: 20140619
  131. RISPERDAL [Suspect]
     Active Substance: RISPERIDONE
     Indication: AFFECTIVE DISORDER
     Route: 048
     Dates: start: 20100521
  132. RISPERDAL [Suspect]
     Active Substance: RISPERIDONE
     Indication: AFFECTIVE DISORDER
     Route: 048
     Dates: start: 20130402, end: 20140619
  133. RISPERDAL [Suspect]
     Active Substance: RISPERIDONE
     Indication: OBSESSIVE-COMPULSIVE DISORDER
     Route: 048
     Dates: start: 20110926
  134. RISPERDAL [Suspect]
     Active Substance: RISPERIDONE
     Indication: OPPOSITIONAL DEFIANT DISORDER
     Dosage: 0.5 MG TO 1 MG AT BED TIME.
     Route: 048
     Dates: start: 20140619, end: 20140724
  135. RISPERDAL [Suspect]
     Active Substance: RISPERIDONE
     Indication: OPPOSITIONAL DEFIANT DISORDER
     Dosage: 0.5 MG AT BED TIME
     Route: 048
     Dates: start: 20070717
  136. RISPERDAL [Suspect]
     Active Substance: RISPERIDONE
     Indication: OPPOSITIONAL DEFIANT DISORDER
     Route: 048
     Dates: start: 20111128
  137. RISPERDAL [Suspect]
     Active Substance: RISPERIDONE
     Indication: OPPOSITIONAL DEFIANT DISORDER
     Route: 048
     Dates: start: 20100818
  138. RISPERDAL [Suspect]
     Active Substance: RISPERIDONE
     Indication: OPPOSITIONAL DEFIANT DISORDER
     Route: 048
     Dates: start: 20130402, end: 20140619
  139. RISPERDAL [Suspect]
     Active Substance: RISPERIDONE
     Indication: ATTENTION DEFICIT/HYPERACTIVITY DISORDER
     Route: 048
     Dates: start: 20100818
  140. RISPERIDONE. [Suspect]
     Active Substance: RISPERIDONE
     Indication: OBSESSIVE-COMPULSIVE DISORDER
     Route: 048
     Dates: start: 20090804, end: 20100227

REACTIONS (3)
  - Obesity [Unknown]
  - Emotional disorder [Unknown]
  - Gynaecomastia [Unknown]

NARRATIVE: CASE EVENT DATE: 200912
